FAERS Safety Report 25514202 (Version 1)
Quarter: 2025Q3

REPORT INFORMATION
  Report Type: Spontaneous
  Country: US (occurrence: US)
  Receive Date: 20250703
  Receipt Date: 20250703
  Transmission Date: 20251020
  Serious: No
  Sender: RADIUS PHARM
  Company Number: US-RADIUS HEALTH INC.-2024US010264

PATIENT
  Sex: Female

DRUGS (1)
  1. TYMLOS [Suspect]
     Active Substance: ABALOPARATIDE
     Indication: Osteosclerosis
     Route: 058
     Dates: start: 202411

REACTIONS (3)
  - Amnesia [Unknown]
  - Vomiting [Unknown]
  - Diarrhoea [Unknown]
